FAERS Safety Report 7094669-3 (Version None)
Quarter: 2010Q4

REPORT INFORMATION
  Report Type: 
  Country: None (occurrence: None)
  Receive Date: 20101110
  Receipt Date: 20101103
  Transmission Date: 20110411
  Serious: Yes (Other)
  Sender: FDA-Public Use
  Company Number: US-AMGEN INC.-QUU444501

PATIENT

DRUGS (9)
  1. NPLATE [Suspect]
     Indication: IDIOPATHIC THROMBOCYTOPENIC PURPURA
     Dosage: UNK UNK, UNK
     Dates: start: 20091019, end: 20091207
  2. FLOMAX [Concomitant]
  3. PEPCID [Concomitant]
  4. ATIVAN [Concomitant]
  5. VITAMIN B 12 LICHTENSTEIN [Concomitant]
  6. FOLIC ACID [Concomitant]
  7. METAMUCIL                          /00029101/ [Concomitant]
  8. MIRTAZAPINE [Concomitant]
     Dosage: UNK
     Dates: start: 20091019
  9. RITUXIMAB [Concomitant]
     Indication: IDIOPATHIC THROMBOCYTOPENIC PURPURA
     Dosage: UNK
     Dates: start: 20100422

REACTIONS (5)
  - DIVERTICULUM [None]
  - DRUG INEFFECTIVE [None]
  - GASTROENTERITIS VIRAL [None]
  - PANCYTOPENIA [None]
  - PROSTATOMEGALY [None]
